APPROVED DRUG PRODUCT: SERTRALINE HYDROCHLORIDE
Active Ingredient: SERTRALINE HYDROCHLORIDE
Strength: EQ 25MG BASE
Dosage Form/Route: TABLET;ORAL
Application: A078626 | Product #001
Applicant: QUAGEN PHARMACEUTICALS LLC
Approved: Jan 31, 2008 | RLD: No | RS: No | Type: DISCN